FAERS Safety Report 19454722 (Version 5)
Quarter: 2022Q2

REPORT INFORMATION
  Report Type: Spontaneous
  Country: US (occurrence: US)
  Receive Date: 20210623
  Receipt Date: 20220603
  Transmission Date: 20220720
  Serious: No
  Sender: FDA-Public Use
  Company Number: US-PFIZER INC-2021606382

PATIENT
  Age: 29 Year
  Sex: Male

DRUGS (3)
  1. GENOTROPIN [Suspect]
     Active Substance: SOMATROPIN
     Indication: Endocrine disorder
     Dosage: 12 MG, DAILY (7 DAYS A WEEK)
  2. GENOTROPIN [Suspect]
     Active Substance: SOMATROPIN
     Indication: Medical anabolic therapy
     Dosage: 12 MG, WEEKLY(4.0MG 3 DAYS WEEK)
  3. GENOTROPIN [Suspect]
     Active Substance: SOMATROPIN
     Dosage: 12 MG, DAILY

REACTIONS (4)
  - Off label use [Unknown]
  - Incorrect dose administered [Unknown]
  - Device issue [Unknown]
  - Drug dose omission by device [Unknown]
